FAERS Safety Report 24189719 (Version 1)
Quarter: 2024Q3

REPORT INFORMATION
  Report Type: Spontaneous
  Country: US (occurrence: US)
  Receive Date: 20240808
  Receipt Date: 20240808
  Transmission Date: 20241016
  Serious: No
  Sender: BAYER
  Company Number: US-BAYER-2024A112082

PATIENT
  Age: 69 Year
  Sex: Male

DRUGS (1)
  1. ADEMPAS [Suspect]
     Active Substance: RIOCIGUAT
     Dosage: UNK
     Dates: start: 20240801, end: 20240801

REACTIONS (2)
  - Heart rate increased [None]
  - Dizziness [None]

NARRATIVE: CASE EVENT DATE: 20240801
